FAERS Safety Report 18902745 (Version 1)
Quarter: 2021Q1

REPORT INFORMATION
  Report Type: Spontaneous
  Country: US (occurrence: US)
  Receive Date: 20210217
  Receipt Date: 20210217
  Transmission Date: 20210420
  Serious: No
  Sender: FDA-Public Use
  Company Number: US-PFIZER INC-2021146429

PATIENT
  Age: 62 Year
  Sex: Male
  Weight: 90.72 kg

DRUGS (5)
  1. DOXYCYCLINE HYCLATE. [Suspect]
     Active Substance: DOXYCYCLINE HYCLATE
     Indication: ACNE
     Dosage: 100 MG, 2X/DAY
     Dates: start: 202101, end: 202101
  2. TOVIAZ [Suspect]
     Active Substance: FESOTERODINE FUMARATE
     Indication: URINARY INCONTINENCE
     Dosage: 8 MG, 1X/DAY
     Dates: start: 202101
  3. MECLIZINE HCL [Suspect]
     Active Substance: MECLIZINE HYDROCHLORIDE
     Indication: HYPERSENSITIVITY
     Dosage: UNK
  4. DOXYCYCLINE HYCLATE. [Suspect]
     Active Substance: DOXYCYCLINE HYCLATE
     Dosage: 100 MG, 1X/DAY
     Dates: start: 202101
  5. TAMSULOSIN [Suspect]
     Active Substance: TAMSULOSIN
     Indication: HYPERTONIC BLADDER
     Dosage: 0.4 MG, 1X/DAY
     Dates: start: 202012

REACTIONS (1)
  - Somnolence [Unknown]
